FAERS Safety Report 10559076 (Version 1)
Quarter: 2014Q4

REPORT INFORMATION
  Report Type: Spontaneous
  Country: DE (occurrence: DE)
  Receive Date: 20141103
  Receipt Date: 20141103
  Transmission Date: 20150529
  Serious: Yes (Congenital Anomaly, Other)
  Sender: FDA-Public Use
  Company Number: DE-DRREDDYS-GER/GER/14/0043918

PATIENT
  Age: 0 Year
  Sex: Female
  Weight: .22 kg

DRUGS (3)
  1. SEROQUEL [Suspect]
     Active Substance: QUETIAPINE FUMARATE
     Indication: PRODUCT USED FOR UNKNOWN INDICATION
     Dosage: 600 [MG/D ]/ DOSAGE BETWEEN 500 AND 600 MG/D
     Route: 064
     Dates: start: 20080909, end: 20090121
  2. CYTOTEC [Concomitant]
     Active Substance: MISOPROSTOL
     Indication: PRODUCT USED FOR UNKNOWN INDICATION
     Route: 064
     Dates: start: 20090121, end: 20090121
  3. SERTRALINE [Suspect]
     Active Substance: SERTRALINE HYDROCHLORIDE
     Indication: PRODUCT USED FOR UNKNOWN INDICATION
     Route: 064
     Dates: start: 20080909, end: 20081215

REACTIONS (4)
  - Congenital choroid plexus cyst [Not Recovered/Not Resolved]
  - Foetal exposure during pregnancy [Unknown]
  - Arnold-Chiari malformation [Not Recovered/Not Resolved]
  - Spina bifida [Not Recovered/Not Resolved]
